FAERS Safety Report 5522838-X (Version None)
Quarter: 2007Q4

REPORT INFORMATION
  Report Type: 
  Country: None (occurrence: None)
  Receive Date: 20071120
  Receipt Date: 20071107
  Transmission Date: 20080405
  Serious: Yes (Hospitalization, Other)
  Sender: FDA-Public Use
  Company Number: FR-GILEAD-2007-0013990

PATIENT
  Sex: Male
  Weight: 64 kg

DRUGS (2)
  1. TRUVADA [Suspect]
     Indication: HIV INFECTION
     Route: 048
     Dates: start: 20051115
  2. SUSTIVA [Suspect]
     Indication: HIV INFECTION
     Route: 048
     Dates: start: 20061123

REACTIONS (3)
  - ARTERIAL STENOSIS [None]
  - POLYNEUROPATHY [None]
  - SURGICAL FAILURE [None]
